FAERS Safety Report 19638599 (Version 1)
Quarter: 2021Q3

REPORT INFORMATION
  Report Type: Spontaneous
  Country: IT (occurrence: IT)
  Receive Date: 20210730
  Receipt Date: 20210730
  Transmission Date: 20211014
  Serious: Yes (Hospitalization)
  Sender: FDA-Public Use
  Company Number: IT-TEVA-2021-IT-1937327

PATIENT
  Age: 69 Year
  Sex: Female
  Weight: 53 kg

DRUGS (7)
  1. DELORAZEPAM [Concomitant]
     Active Substance: DELORAZEPAM
     Indication: INSOMNIA
     Dosage: 25 GTT
     Route: 048
  2. ZOLPIDEM TARTRATE. [Concomitant]
     Active Substance: ZOLPIDEM TARTRATE
     Indication: INSOMNIA
     Dosage: 20 MG
     Route: 048
  3. AJOVY [Suspect]
     Active Substance: FREMANEZUMAB-VFRM
     Indication: MIGRAINE
     Dosage: 225 MG
     Route: 058
     Dates: start: 20210208, end: 20210608
  4. DIFMETRE SUPPOSTE [Concomitant]
     Indication: MIGRAINE
     Dosage: 25 MG
     Route: 054
  5. PALEXIA [Concomitant]
     Active Substance: TAPENTADOL HYDROCHLORIDE
     Indication: BACK PAIN
     Dosage: 100 MG
     Route: 048
  6. AMLODIPINE [Concomitant]
     Active Substance: AMLODIPINE BESYLATE
     Indication: HYPERTENSION
     Dosage: 2.5 MG
     Route: 048
  7. CARVEDILOL. [Concomitant]
     Active Substance: CARVEDILOL
     Indication: HYPERTENSION
     Dosage: 2.5 MG
     Route: 048

REACTIONS (2)
  - Cardioversion [Recovered/Resolved]
  - Atrial fibrillation [Recovered/Resolved]

NARRATIVE: CASE EVENT DATE: 20210613
